FAERS Safety Report 20713402 (Version 3)
Quarter: 2022Q2

REPORT INFORMATION
  Report Type: Report from Study
  Country: KR (occurrence: KR)
  Receive Date: 20220415
  Receipt Date: 20220519
  Transmission Date: 20220721
  Serious: Yes (Hospitalization)
  Sender: FDA-Public Use
  Company Number: KR-GLAXOSMITHKLINE-KR2022GSK064848

PATIENT

DRUGS (10)
  1. FLUTICASONE FUROATE\UMECLIDINIUM BROMIDE\VILANTEROL TRIFENATATE [Suspect]
     Active Substance: FLUTICASONE FUROATE\UMECLIDINIUM BROMIDE\VILANTEROL TRIFENATATE
     Indication: Chronic obstructive pulmonary disease
     Dosage: QD, ORAL INHALATION
     Route: 055
     Dates: start: 20220209, end: 20220407
  2. FLUTICASONE FUROATE\UMECLIDINIUM BROMIDE\VILANTEROL TRIFENATATE [Suspect]
     Active Substance: FLUTICASONE FUROATE\UMECLIDINIUM BROMIDE\VILANTEROL TRIFENATATE
     Dosage: QD, ORAL INHALATION
     Route: 055
     Dates: start: 20220509
  3. MOROXACIN [Concomitant]
     Indication: Product used for unknown indication
     Dosage: 400 MG, QD
     Route: 048
     Dates: start: 20220307, end: 20220314
  4. PREDNISOLONE [Concomitant]
     Active Substance: PREDNISOLONE
     Indication: Chronic obstructive pulmonary disease
     Dosage: 5 MG, QD
     Route: 048
     Dates: start: 20220222, end: 20220222
  5. ASIMA TABLET [Concomitant]
     Indication: Chronic obstructive pulmonary disease
     Dosage: 400 MG, BID
     Route: 048
     Dates: start: 20220222, end: 20220222
  6. SUPRAX CAPSULE [Concomitant]
     Indication: Chronic obstructive pulmonary disease
     Dosage: 100 MG, BID
     Route: 048
     Dates: start: 20220222, end: 20220314
  7. PRANLUKAST [Concomitant]
     Active Substance: PRANLUKAST
     Indication: Chronic obstructive pulmonary disease
     Dosage: 2 DF, BID
     Route: 048
     Dates: start: 20190311, end: 20220126
  8. PARAMACET TABLET [Concomitant]
     Indication: Pain
     Dosage: 1 DF, TID
     Route: 048
     Dates: start: 20220314, end: 20220314
  9. ACETAMINOPHEN\HYDROCODONE BITARTRATE [Concomitant]
     Active Substance: ACETAMINOPHEN\HYDROCODONE BITARTRATE
     Indication: Pain
     Dosage: 1 DF, TID
     Route: 048
     Dates: start: 20220125, end: 20220125
  10. NEXIUM [Concomitant]
     Active Substance: ESOMEPRAZOLE MAGNESIUM
     Indication: Peptic ulcer
     Dosage: 20 MG, QD
     Route: 048
     Dates: start: 20121226, end: 20220126

REACTIONS (1)
  - Dyspnoea [Recovered/Resolved]

NARRATIVE: CASE EVENT DATE: 20220406
